FAERS Safety Report 4359800-9 (Version None)
Quarter: 2004Q2

REPORT INFORMATION
  Report Type: 
  Country: None (occurrence: None)
  Receive Date: 20040518
  Receipt Date: 20040513
  Transmission Date: 20050107
  Serious: Yes (Life-Threatening, Hospitalization)
  Sender: FDA-Public Use
  Company Number: ZW-GLAXOSMITHKLINE-B0332693A

PATIENT
  Age: 35 Year
  Sex: Female

DRUGS (4)
  1. COMBIVIR [Suspect]
     Indication: HIV INFECTION
     Dosage: 1TAB TWICE PER DAY
     Route: 048
  2. TENOFOVIR [Suspect]
     Indication: HIV INFECTION
     Dosage: 300MG PER DAY
     Route: 048
  3. STAVUDINE [Concomitant]
  4. FLUCONAZOLE [Concomitant]

REACTIONS (2)
  - HEPATIC FAILURE [None]
  - NEUTROPENIA [None]
